FAERS Safety Report 8510511-5 (Version None)
Quarter: 2012Q3

REPORT INFORMATION
  Report Type: 
  Country: None (occurrence: None)
  Receive Date: 20120716
  Receipt Date: 20120709
  Transmission Date: 20120928
  Serious: No
  Sender: FDA-Public Use
  Company Number: US-009507513-1207USA002238

PATIENT

DRUGS (1)
  1. ASMANEX TWISTHALER [Suspect]
     Dosage: 1 INHALATION IN AM, 1 IN PM
     Route: 055
     Dates: start: 20120501

REACTIONS (3)
  - DRUG DOSE OMISSION [None]
  - PRODUCT QUALITY ISSUE [None]
  - NO ADVERSE EVENT [None]
